FAERS Safety Report 4948267-5 (Version None)
Quarter: 2006Q1

REPORT INFORMATION
  Report Type: 
  Country: None (occurrence: None)
  Receive Date: 20060313
  Receipt Date: 20060301
  Transmission Date: 20060701
  Serious: Yes (Hospitalization)
  Sender: FDA-Public Use
  Company Number: 2006BH004443

PATIENT
  Age: 19 Year
  Sex: Female

DRUGS (9)
  1. DEXAMETHASONE [Suspect]
     Indication: LYMPHOMA
     Dosage: 40 MG;
     Dates: start: 20060211, end: 20060211
  2. DEXAMETHASONE [Suspect]
     Indication: LYMPHOMA
     Dosage: 40 MG;
     Dates: start: 20060212, end: 20060212
  3. DEXAMETHASONE [Suspect]
     Indication: LYMPHOMA
     Dosage: 40 MG;
     Dates: start: 20060213, end: 20060213
  4. DEXAMETHASONE [Suspect]
     Indication: LYMPHOMA
     Dosage: 40 MG;
     Dates: start: 20060214, end: 20060214
  5. CISPLATIN [Suspect]
     Indication: LYMPHOMA
     Dosage: 160 MG;
     Dates: start: 20060211, end: 20060211
  6. CYTARABINE [Suspect]
     Indication: LYMPHOMA
     Dosage: 6400 MG;
     Dates: start: 20060213, end: 20060213
  7. RITUXIMAB (RITUXIMAB) [Suspect]
     Indication: LYMPHOMA
     Dosage: 600 MG;
     Dates: start: 20060209, end: 20060209
  8. RITUXIMAB (RITUXIMAB) [Suspect]
     Indication: LYMPHOMA
     Dosage: 600 MG;
     Dates: start: 20060212, end: 20060212
  9. NEUPOGEN [Concomitant]

REACTIONS (2)
  - LOWER RESPIRATORY TRACT INFECTION [None]
  - NAUSEA [None]
